FAERS Safety Report 6447911-3 (Version None)
Quarter: 2009Q4

REPORT INFORMATION
  Report Type: 
  Country: None (occurrence: None)
  Receive Date: 20091120
  Receipt Date: 20091110
  Transmission Date: 20100525
  Serious: No
  Sender: FDA-Public Use
  Company Number: US-JNJFOC-20091104307

PATIENT
  Sex: Male
  Weight: 111.13 kg

DRUGS (5)
  1. DURAGESIC-100 [Suspect]
     Indication: BACK PAIN
     Route: 062
  2. DURAGESIC-100 [Suspect]
     Route: 062
  3. VICODIN [Concomitant]
     Indication: BREAKTHROUGH PAIN
     Route: 048
  4. DILAUDID [Concomitant]
     Indication: BREAKTHROUGH PAIN
     Route: 048
  5. VALIUM [Concomitant]
     Indication: MUSCLE SPASMS
     Route: 048

REACTIONS (4)
  - DRUG DOSE OMISSION [None]
  - HYPERHIDROSIS [None]
  - INAPPROPRIATE SCHEDULE OF DRUG ADMINISTRATION [None]
  - PRODUCT QUALITY ISSUE [None]
